FAERS Safety Report 9529786 (Version 1)
Quarter: 2013Q1

REPORT INFORMATION
  Report Type: Spontaneous
  Country: US (occurrence: None)
  Receive Date: 20130318
  Receipt Date: 20130318
  Transmission Date: 20140127
  Serious: Yes (Life-Threatening, Disabling)
  Sender: FDA-Public Use
  Company Number: 2012SP013611

PATIENT
  Age: 52 Year
  Sex: Male

DRUGS (2)
  1. PEGINTRON (PEGINTERFERON ALFA-2B) POWDER FOR INJECTION [Suspect]
     Indication: HEPATITIS C
     Dates: start: 201111, end: 201112
  2. MK-8908 (RIBAVIRIN) CAPSULE [Suspect]
     Indication: HEPATITIS C

REACTIONS (1)
  - Drug ineffective [None]
